FAERS Safety Report 8495608-0 (Version None)
Quarter: 2012Q2

REPORT INFORMATION
  Report Type: 
  Country: None (occurrence: None)
  Receive Date: 20120403
  Receipt Date: 20110617
  Transmission Date: 20120825
  Serious: Yes (Other)
  Sender: FDA-Public Use
  Company Number: 1-0611-62

PATIENT
  Sex: Female

DRUGS (5)
  1. NASONEX [Concomitant]
  2. TRIAMCINOLONE MIXED WITH AQUAPHOR [Concomitant]
  3. DERMA-SMOOTHE/FS BODY OIL HILL DERMACEUTICALS [Suspect]
     Indication: DERMATITIS ATOPIC
     Dosage: TOPICAL
     Route: 061
  4. ALLERGY SHOTS WEEKLY [Concomitant]
  5. XYZAL [Concomitant]

REACTIONS (2)
  - URTICARIA [None]
  - RASH MACULAR [None]
